FAERS Safety Report 22350138 (Version 1)
Quarter: 2023Q2

REPORT INFORMATION
  Report Type: Spontaneous
  Country: MY (occurrence: MY)
  Receive Date: 20230522
  Receipt Date: 20230522
  Transmission Date: 20230721
  Serious: Yes (Other)
  Sender: FDA-Public Use
  Company Number: MY-ARBOR PHARMACEUTICALS, LLC-MY-2023ARB004026

PATIENT

DRUGS (3)
  1. TRIPTODUR [Suspect]
     Active Substance: TRIPTORELIN
     Indication: Precocious puberty
     Dosage: UNK
     Route: 065
  2. TRIPTODUR [Suspect]
     Active Substance: TRIPTORELIN
  3. TRIPTODUR [Suspect]
     Active Substance: TRIPTORELIN

REACTIONS (3)
  - Deafness [Unknown]
  - Cognitive disorder [Unknown]
  - Swelling [Unknown]
